FAERS Safety Report 9659693 (Version 5)
Quarter: 2014Q1

REPORT INFORMATION
  Report Type: Spontaneous
  Country: US (occurrence: US)
  Receive Date: 20131031
  Receipt Date: 20140130
  Transmission Date: 20141002
  Serious: Yes (Other)
  Sender: FDA-Public Use
  Company Number: US-JNJFOC-20131016369

PATIENT
  Age: 59 Year
  Sex: Female
  Weight: 93.44 kg

DRUGS (1)
  1. REMICADE [Suspect]
     Indication: CROHN^S DISEASE
     Route: 042
     Dates: start: 2009

REACTIONS (2)
  - Intraductal proliferative breast lesion [Recovered/Resolved]
  - Exposure during pregnancy [Unknown]
